FAERS Safety Report 15230042 (Version 1)
Quarter: 2018Q3

REPORT INFORMATION
  Report Type: Spontaneous
  Country: US (occurrence: US)
  Receive Date: 20180802
  Receipt Date: 20180802
  Transmission Date: 20181010
  Serious: Yes (Other)
  Sender: FDA-Public Use
  Company Number: US-ACCORD-062875

PATIENT
  Age: 39 Year
  Sex: Female
  Weight: 68.04 kg

DRUGS (13)
  1. DOCETAXEL ACCORD [Suspect]
     Active Substance: DOCETAXEL
     Indication: BREAST CANCER
     Dosage: STRENGTH: 75 MG/M2?TCH CHEMOTHERAPY?DOSE: 6 CYCLES EVERY THREE WEEKS,
     Route: 042
     Dates: start: 20140307, end: 20140710
  2. DOCETAXEL SANOFI?AVENTIS [Suspect]
     Active Substance: DOCETAXEL
     Indication: BREAST CANCER
     Dosage: STRENGTH: 75 MG/M2??DOSE: 6 CYCLES EVERY THREE WEEKS,
     Route: 042
     Dates: start: 20140307, end: 20140710
  3. FUROSEMIDE. [Concomitant]
     Active Substance: FUROSEMIDE
     Dates: start: 200712
  4. ERGOCALCIFEROL. [Concomitant]
     Active Substance: ERGOCALCIFEROL
     Dates: start: 201012
  5. PARAPLATIN [Concomitant]
     Active Substance: CARBOPLATIN
     Indication: BREAST CANCER
     Dosage: DOSE: AUC 6, 6 CYCLES EVERY 3 WEEKS
     Route: 042
     Dates: start: 20140307, end: 20140710
  6. DEXILANT [Concomitant]
     Active Substance: DEXLANSOPRAZOLE
     Dates: start: 2006
  7. CARVEDILOL/CARVEDILOL HYDROCHLODRIDE [Concomitant]
     Dates: start: 200712
  8. LISINOPRIL. [Concomitant]
     Active Substance: LISINOPRIL
     Dates: start: 200712
  9. POTASSIUM [Concomitant]
     Active Substance: POTASSIUM
     Dates: start: 200712
  10. SPIRONOLACTONE. [Concomitant]
     Active Substance: SPIRONOLACTONE
     Dates: start: 200712
  11. PREDNISONE. [Concomitant]
     Active Substance: PREDNISONE
     Dates: start: 200006
  12. PLAQUENIL [Concomitant]
     Active Substance: HYDROXYCHLOROQUINE SULFATE
     Dates: start: 200006
  13. HERCEPTIN [Concomitant]
     Active Substance: TRASTUZUMAB
     Indication: BREAST CANCER
     Dosage: STRENGTH: 4MG/KG  LOADING DOSE FOLLOWED BY 2MG/KG EVERY WEEK, THEN 6 MG/KG FOR EVERY 3 WEEKS
     Route: 042
     Dates: start: 20140307, end: 20140710

REACTIONS (1)
  - Alopecia [Not Recovered/Not Resolved]

NARRATIVE: CASE EVENT DATE: 2014
